FAERS Safety Report 25522101 (Version 2)
Quarter: 2025Q3

REPORT INFORMATION
  Report Type: Spontaneous
  Country: US (occurrence: US)
  Receive Date: 20250707
  Receipt Date: 20250810
  Transmission Date: 20251021
  Serious: Yes (Other)
  Sender: ALEXION PHARMACEUTICALS
  Company Number: US-AstraZeneca-CH-00901517A

PATIENT

DRUGS (1)
  1. AIRSUPRA [Suspect]
     Active Substance: ALBUTEROL SULFATE\BUDESONIDE
     Route: 065

REACTIONS (9)
  - Fall [Unknown]
  - Neoplasm malignant [Unknown]
  - Hallucination [Unknown]
  - Gait disturbance [Unknown]
  - Fatigue [Unknown]
  - Asthma [Unknown]
  - Head injury [Unknown]
  - Joint injury [Unknown]
  - Illness [Unknown]
